FAERS Safety Report 4541046-2 (Version None)
Quarter: 2004Q4

REPORT INFORMATION
  Report Type: 
  Country: None (occurrence: None)
  Receive Date: 20041228
  Receipt Date: 20041216
  Transmission Date: 20050328
  Serious: Yes (Hospitalization)
  Sender: FDA-Public Use
  Company Number: B0361999A

PATIENT
  Age: 25 Year
  Sex: Male

DRUGS (2)
  1. ALBENZA [Suspect]
     Indication: NEUROCYSTICERCOSIS
     Dosage: ORAL
     Route: 048
  2. DEXAMETHASONE [Concomitant]

REACTIONS (5)
  - CEREBRAL INFARCTION [None]
  - HEMIPARESIS [None]
  - HYPOAESTHESIA [None]
  - MOTOR DYSFUNCTION [None]
  - PARTIAL SEIZURES [None]
